FAERS Safety Report 17457288 (Version 1)
Quarter: 2020Q1

REPORT INFORMATION
  Report Type: Report from Study
  Country: None (occurrence: CO)
  Receive Date: 20200225
  Receipt Date: 20200225
  Transmission Date: 20200409
  Serious: Yes (Other)
  Sender: FDA-Public Use
  Company Number: CO-ABBVIE-20K-036-3291356-00

PATIENT
  Age: 21 Year
  Sex: Male
  Weight: 62 kg

DRUGS (7)
  1. ASCORBIC ACID. [Concomitant]
     Active Substance: ASCORBIC ACID
     Indication: HIDRADENITIS
     Route: 048
  2. SALICYLIC ACID. [Concomitant]
     Active Substance: SALICYLIC ACID
     Indication: MASS
     Route: 061
  3. HUMIRA [Suspect]
     Active Substance: ADALIMUMAB
     Indication: HIDRADENITIS
     Route: 058
     Dates: start: 20190118, end: 20200127
  4. CIPROFLOXACIN. [Concomitant]
     Active Substance: CIPROFLOXACIN
     Indication: HIDRADENITIS
     Route: 048
  5. FOLIC ACID W/VITAMIN B COMPLEX [Concomitant]
     Indication: HIDRADENITIS
     Route: 048
  6. FITOSTIMOLINE [Concomitant]
     Indication: HIDRADENITIS
     Route: 061
  7. NAPROXEN. [Concomitant]
     Active Substance: NAPROXEN
     Indication: HIDRADENITIS
     Route: 048

REACTIONS (4)
  - Mass [Recovering/Resolving]
  - Haemorrhage [Recovering/Resolving]
  - Haemoglobin decreased [Recovering/Resolving]
  - Irritability [Unknown]

NARRATIVE: CASE EVENT DATE: 20191219
